FAERS Safety Report 5122986-2 (Version None)
Quarter: 2006Q4

REPORT INFORMATION
  Report Type: 
  Country: None (occurrence: None)
  Receive Date: 20061005
  Receipt Date: 20060919
  Transmission Date: 20070319
  Serious: Yes (Hospitalization, Other)
  Sender: FDA-Public Use
  Company Number: US200607004614

PATIENT
  Age: 69 Year
  Sex: Female

DRUGS (2)
  1. FORTEO [Suspect]
     Indication: OSTEOPOROSIS
     Dates: start: 20050726, end: 20060622
  2. FORTEO PEN (FORTEO PEN) [Concomitant]

REACTIONS (2)
  - ANKLE FRACTURE [None]
  - FALL [None]
